FAERS Safety Report 16968938 (Version 1)
Quarter: 2019Q4

REPORT INFORMATION
  Report Type: Spontaneous
  Country: ES (occurrence: ES)
  Receive Date: 20191029
  Receipt Date: 20191029
  Transmission Date: 20200122
  Serious: Yes (Other)
  Sender: FDA-Public Use
  Company Number: ES-TEVA-2019-ES-1128368

PATIENT
  Sex: Male

DRUGS (3)
  1. BISOPROLOL (2328A) [Interacting]
     Active Substance: BISOPROLOL
     Route: 048
     Dates: start: 20190601, end: 20191007
  2. FLECAINIDA (2363A) [Suspect]
     Active Substance: FLECAINIDE
     Indication: ATRIAL FIBRILLATION
     Dosage: 100MG EVERY 12 HOURS
     Route: 048
     Dates: start: 20191008, end: 20191011
  3. BISOPROLOL (2328A) [Suspect]
     Active Substance: BISOPROLOL
     Indication: ATRIAL FIBRILLATION
     Dosage: 2.5MG EVERY 24H
     Route: 048
     Dates: start: 20191008, end: 20191011

REACTIONS (3)
  - Drug interaction [Unknown]
  - Presyncope [Recovered/Resolved]
  - Bradycardia [Recovered/Resolved]

NARRATIVE: CASE EVENT DATE: 20191011
